FAERS Safety Report 5741649-3 (Version None)
Quarter: 2008Q2

REPORT INFORMATION
  Report Type: 
  Country: None (occurrence: None)
  Receive Date: 20080519
  Receipt Date: 20061101
  Transmission Date: 20081010
  Serious: No
  Sender: FDA-Public Use
  Company Number: US-BAYER-US-2006-034195

PATIENT

DRUGS (1)
  1. ULTRAVIST 300 [Suspect]
     Indication: COMPUTERISED TOMOGRAM
     Dosage: UNIT DOSE: 100 ML
     Route: 042
     Dates: start: 20061023, end: 20061023

REACTIONS (4)
  - ORAL PRURITUS [None]
  - PRURITUS GENERALISED [None]
  - SNEEZING [None]
  - UPPER RESPIRATORY TRACT CONGESTION [None]
